FAERS Safety Report 25486332 (Version 1)
Quarter: 2025Q2

REPORT INFORMATION
  Report Type: Spontaneous
  Country: US (occurrence: US)
  Receive Date: 20250626
  Receipt Date: 20250626
  Transmission Date: 20250717
  Serious: No
  Sender: SANOFI AVENTIS
  Company Number: US-SA-2025SA180424

PATIENT
  Sex: Male

DRUGS (11)
  1. DUPIXENT [Suspect]
     Active Substance: DUPILUMAB
     Indication: Asthma
     Dosage: 300 MG, QM
     Route: 058
  2. OZEMPIC [Concomitant]
     Active Substance: SEMAGLUTIDE
  3. GENTAMICIN [Concomitant]
     Active Substance: GENTAMICIN
  4. DESOXIMETASONE [Concomitant]
     Active Substance: DESOXIMETASONE
  5. ATORVASTATIN CALCIUM [Concomitant]
     Active Substance: ATORVASTATIN CALCIUM
  6. AMITRIPTYLINE [Concomitant]
     Active Substance: AMITRIPTYLINE
  7. MONTELUKAST [Concomitant]
     Active Substance: MONTELUKAST
  8. DOXYCYCLINE [Concomitant]
     Active Substance: DOXYCYCLINE
  9. IRBESARTAN [Concomitant]
     Active Substance: IRBESARTAN
  10. METOPROLOL [Concomitant]
     Active Substance: METOPROLOL
  11. CLOBETASOL [Concomitant]
     Active Substance: CLOBETASOL

REACTIONS (1)
  - Off label use [Unknown]
